FAERS Safety Report 17354326 (Version 7)
Quarter: 2021Q2

REPORT INFORMATION
  Report Type: Spontaneous
  Country: US (occurrence: US)
  Receive Date: 20200131
  Receipt Date: 20210604
  Transmission Date: 20210716
  Serious: Yes (Hospitalization, Other)
  Sender: FDA-Public Use
  Company Number: US-JNJFOC-20200143464

PATIENT
  Age: 5 Decade
  Sex: Female

DRUGS (7)
  1. RISPERIDONE. [Suspect]
     Active Substance: RISPERIDONE
     Indication: BIPOLAR DISORDER
     Route: 048
     Dates: start: 201412
  2. RISPERDAL [Suspect]
     Active Substance: RISPERIDONE
     Indication: BIPOLAR DISORDER
     Route: 048
     Dates: end: 2015
  3. RISPERDAL [Suspect]
     Active Substance: RISPERIDONE
     Indication: DEPRESSION
     Route: 048
     Dates: start: 2018
  4. RISPERDAL [Suspect]
     Active Substance: RISPERIDONE
     Route: 048
  5. ESCITALOPRAM [Suspect]
     Active Substance: ESCITALOPRAM OXALATE
     Indication: BIPOLAR DISORDER
     Route: 048
  6. OLANZAPINE. [Suspect]
     Active Substance: OLANZAPINE
     Indication: BIPOLAR DISORDER
     Route: 048
  7. RISPERDAL [Suspect]
     Active Substance: RISPERIDONE
     Route: 048
     Dates: start: 20180725

REACTIONS (13)
  - Weight increased [Recovered/Resolved]
  - Neuralgia [Recovered/Resolved]
  - Skin burning sensation [Recovered/Resolved]
  - Blood prolactin increased [Recovered/Resolved]
  - Off label use [Unknown]
  - Breast enlargement [Unknown]
  - Suicidal ideation [Unknown]
  - Adverse drug reaction [Unknown]
  - Abdominal distension [Unknown]
  - Drug ineffective for unapproved indication [Unknown]
  - Bipolar I disorder [Recovering/Resolving]
  - Bone pain [Recovered/Resolved]
  - Akathisia [Recovered/Resolved]

NARRATIVE: CASE EVENT DATE: 2015
